FAERS Safety Report 6570698-0 (Version None)
Quarter: 2010Q1

REPORT INFORMATION
  Report Type: 
  Country: None (occurrence: None)
  Receive Date: 20100204
  Receipt Date: 20100201
  Transmission Date: 20100710
  Serious: Yes (Hospitalization)
  Sender: FDA-Public Use
  Company Number: A0842795A

PATIENT
  Sex: Female
  Weight: 78 kg

DRUGS (4)
  1. ZINNAT [Suspect]
     Indication: URINARY TRACT INFECTION
     Dosage: 500MG THREE TIMES PER DAY
     Route: 065
     Dates: start: 20100126, end: 20100131
  2. HYGROTON [Concomitant]
     Dates: start: 20070101
  3. ATENOLOL [Concomitant]
     Dosage: 1TAB TWICE PER DAY
     Dates: start: 20100122
  4. SUSTRATE [Concomitant]
     Dosage: 1TAB TWICE PER DAY
     Dates: start: 20100122

REACTIONS (4)
  - DYSPHAGIA [None]
  - HYPERSENSITIVITY [None]
  - RASH MACULAR [None]
  - STOMATITIS [None]
